FAERS Safety Report 19261677 (Version 1)
Quarter: 2021Q2

REPORT INFORMATION
  Report Type: Spontaneous
  Country: US (occurrence: US)
  Receive Date: 20210515
  Receipt Date: 20210515
  Transmission Date: 20210717
  Serious: No
  Sender: FDA-Public Use
  Company Number: US-SA-2021SA158565

PATIENT
  Age: 47 Year
  Sex: Female

DRUGS (9)
  1. PANTOPRAZOLE [Concomitant]
     Active Substance: PANTOPRAZOLE
  2. DICLOFENAC [Concomitant]
     Active Substance: DICLOFENAC
  3. DUPIXENT [Suspect]
     Active Substance: DUPILUMAB
     Indication: DERMATITIS
     Dosage: 300MG/2ML, QOW
     Route: 058
     Dates: start: 20191102
  4. AMOXICILLIN. [Concomitant]
     Active Substance: AMOXICILLIN
  5. IRBESARTAN. [Concomitant]
     Active Substance: IRBESARTAN
  6. RIZATRIPTAN. [Concomitant]
     Active Substance: RIZATRIPTAN
  7. COVID?19 VACCINE NOS. [Concomitant]
     Active Substance: COVID-19 VACCINE NOS
     Indication: COVID-19 IMMUNISATION
     Dosage: UNK
     Dates: start: 20210505
  8. TRAMADOL HCL [Concomitant]
     Active Substance: TRAMADOL HYDROCHLORIDE
  9. OFLOXACIN. [Concomitant]
     Active Substance: OFLOXACIN

REACTIONS (2)
  - Product use in unapproved indication [Unknown]
  - Eye irritation [Not Recovered/Not Resolved]

NARRATIVE: CASE EVENT DATE: 20191102
